APPROVED DRUG PRODUCT: INVEGA SUSTENNA
Active Ingredient: PALIPERIDONE PALMITATE
Strength: 117MG/0.75ML (117MG/0.75ML)
Dosage Form/Route: SUSPENSION, EXTENDED RELEASE;INTRAMUSCULAR
Application: N022264 | Product #003
Applicant: JANSSEN PHARMACEUTICALS INC
Approved: Jul 31, 2009 | RLD: Yes | RS: No | Type: RX

PATENTS:
Patent 9439906 | Expires: Jan 26, 2031
Patent 9439906 | Expires: Jan 26, 2031